FAERS Safety Report 9340583 (Version 1)
Quarter: 2013Q2

REPORT INFORMATION
  Report Type: Spontaneous
  Country: US (occurrence: US)
  Receive Date: 20130610
  Receipt Date: 20130610
  Transmission Date: 20140414
  Serious: Yes (Hospitalization, Disabling, Other)
  Sender: FDA-Public Use
  Company Number: PHHY2013US021339

PATIENT
  Sex: Male

DRUGS (3)
  1. JAKAFI [Suspect]
     Indication: MYELOFIBROSIS
     Dosage: 15 MG, DAILY IN THE MORNING
     Route: 048
     Dates: start: 20120601
  2. JAKAFI [Suspect]
     Dosage: 20 MG, DAILY AT BEDTIME
  3. CIPROFLOXACIN [Suspect]
     Dosage: UNK

REACTIONS (4)
  - Finger amputation [Recovering/Resolving]
  - Adverse drug reaction [Unknown]
  - Myocardial infarction [Recovering/Resolving]
  - Kidney infection [Recovering/Resolving]
